FAERS Safety Report 6206465-7 (Version None)
Quarter: 2009Q2

REPORT INFORMATION
  Report Type: 
  Country: None (occurrence: None)
  Receive Date: 20090527
  Receipt Date: 20090527
  Transmission Date: 20091009
  Serious: No
  Sender: FDA-Public Use
  Company Number: None

PATIENT
  Age: 32 Year
  Sex: Male
  Weight: 70 kg

DRUGS (1)
  1. VIAGRA [Suspect]
     Indication: ERECTILE DYSFUNCTION
     Dosage: 50 MG ONCE IN 2-MONTHS BUCCAL
     Route: 002
     Dates: start: 20060118, end: 20070205

REACTIONS (3)
  - CHEST PAIN [None]
  - LABILE BLOOD PRESSURE [None]
  - SINUS BRADYCARDIA [None]
